FAERS Safety Report 6772387-6 (Version None)
Quarter: 2010Q2

REPORT INFORMATION
  Report Type: 
  Country: None (occurrence: None)
  Receive Date: 20100616
  Receipt Date: 20090710
  Transmission Date: 20101027
  Serious: No
  Sender: FDA-Public Use
  Company Number: US-ASTRAZENECA-2009UW10724

PATIENT
  Age: 9 Year
  Sex: Male

DRUGS (2)
  1. PULMICORT RESPULES [Suspect]
     Route: 055
     Dates: start: 20040101
  2. PULMICORT RESPULES [Suspect]
     Route: 055
     Dates: start: 20090401

REACTIONS (3)
  - COUGH [None]
  - OXYGEN SATURATION DECREASED [None]
  - WEIGHT INCREASED [None]
